FAERS Safety Report 7977292-5 (Version None)
Quarter: 2011Q4

REPORT INFORMATION
  Report Type: 
  Country: None (occurrence: None)
  Receive Date: 20111213
  Receipt Date: 20111115
  Transmission Date: 20120403
  Serious: No
  Sender: FDA-Public Use
  Company Number: US-AMGEN-USASP2011060282

PATIENT
  Age: 75 Year
  Sex: Female

DRUGS (2)
  1. PREDNISONE TAB [Concomitant]
  2. ENBREL [Suspect]
     Indication: RHEUMATOID ARTHRITIS
     Dosage: 50 MG, QWK
     Dates: start: 20110629, end: 20110730

REACTIONS (3)
  - THERAPEUTIC RESPONSE DECREASED [None]
  - RHEUMATOID ARTHRITIS [None]
  - BLOOD PRESSURE INCREASED [None]
